FAERS Safety Report 4647093-4 (Version None)
Quarter: 2005Q2

REPORT INFORMATION
  Report Type: 
  Country: None (occurrence: None)
  Receive Date: 20050331
  Receipt Date: 20050127
  Transmission Date: 20051028
  Serious: No
  Sender: FDA-Public Use
  Company Number: 05P-163-0288321-00

PATIENT
  Age: 78 Year
  Sex: Male
  Weight: 90.9 kg

DRUGS (10)
  1. HUMIRA [Suspect]
     Indication: RHEUMATOID ARTHRITIS
     Dosage: 40 MG, 1 IN 2 WK, SUBCUTANEOUS
     Route: 058
     Dates: start: 20040801
  2. GLIPIZIDE [Concomitant]
  3. ACTOS [Concomitant]
  4. FAMOTIDINE [Concomitant]
  5. GABAPENTIN [Concomitant]
  6. LISINOPRIL [Concomitant]
  7. SOTALOL HCL [Concomitant]
  8. WARFARIN SODIUM [Concomitant]
  9. BACTRIM [Concomitant]
  10. LOVASTATIN [Concomitant]

REACTIONS (1)
  - BLOOD GLUCOSE DECREASED [None]
